FAERS Safety Report 11964901 (Version 2)
Quarter: 2016Q1

REPORT INFORMATION
  Report Type: Spontaneous
  Country: US (occurrence: US)
  Receive Date: 20160127
  Receipt Date: 20160211
  Transmission Date: 20160526
  Serious: No
  Sender: FDA-Public Use
  Company Number: US-BAYER-2016-016205

PATIENT
  Age: 89 Year
  Sex: Female
  Weight: 59.86 kg

DRUGS (2)
  1. MIRALAX [Suspect]
     Active Substance: POLYETHYLENE GLYCOL 3350
     Indication: CONSTIPATION
     Dosage: 2 DF, BID
     Route: 048
     Dates: start: 201601
  2. CENTRUM SELECT 50+ [Concomitant]
     Active Substance: VITAMINS

REACTIONS (1)
  - Circumstance or information capable of leading to medication error [None]
